FAERS Safety Report 7419242-6 (Version None)
Quarter: 2011Q2

REPORT INFORMATION
  Report Type: 
  Country: None (occurrence: None)
  Receive Date: 20110415
  Receipt Date: 20110406
  Transmission Date: 20111010
  Serious: Yes (Life-Threatening)
  Sender: FDA-Public Use
  Company Number: KE-BAXTER-2011BH010534

PATIENT
  Age: 15 Month
  Sex: Female
  Weight: 10 kg

DRUGS (3)
  1. HUMAN ALBUMIN IMMUNO 5% [Suspect]
     Indication: FLUID REPLACEMENT
     Route: 042
     Dates: start: 20101209, end: 20101209
  2. PARACETAMOL [Concomitant]
     Indication: PRODUCT USED FOR UNKNOWN INDICATION
     Route: 065
  3. BENZYLPENICILLIN [Concomitant]
     Indication: PRODUCT USED FOR UNKNOWN INDICATION
     Route: 065

REACTIONS (1)
  - PULMONARY OEDEMA [None]
